FAERS Safety Report 24941515 (Version 1)
Quarter: 2025Q1

REPORT INFORMATION
  Report Type: Spontaneous
  Country: US (occurrence: None)
  Receive Date: 20250206
  Receipt Date: 20250206
  Transmission Date: 20250408
  Serious: Yes (Other)
  Sender: FDA-CTU
  Company Number: None

PATIENT
  Age: 6 Year
  Sex: Male

DRUGS (1)
  1. BREYNA [Suspect]
     Active Substance: BUDESONIDE\FORMOTEROL FUMARATE
     Indication: Asthma
     Dosage: FREQUENCY : TWICE A DAY;?STRENGTH: 80
     Route: 055
     Dates: start: 20250128, end: 20250206

REACTIONS (3)
  - Throat irritation [None]
  - Chest pain [None]
  - Oropharyngeal discomfort [None]

NARRATIVE: CASE EVENT DATE: 20250206
